FAERS Safety Report 15430614 (Version 1)
Quarter: 2018Q3

REPORT INFORMATION
  Report Type: Spontaneous
  Country: DE (occurrence: DE)
  Receive Date: 20180926
  Receipt Date: 20180926
  Transmission Date: 20181010
  Serious: Yes (Death, Hospitalization)
  Sender: FDA-Public Use
  Company Number: DE-ROCHE-2189551

PATIENT
  Age: 54 Year
  Sex: Female
  Weight: 93 kg

DRUGS (2)
  1. AVASTIN [Suspect]
     Active Substance: BEVACIZUMAB
     Indication: OVARIAN CANCER
     Route: 065
  2. TAXOL [Suspect]
     Active Substance: PACLITAXEL
     Indication: OVARIAN CANCER
     Route: 065
     Dates: start: 201008

REACTIONS (8)
  - Intestinal perforation [Fatal]
  - Metastases to peritoneum [Unknown]
  - Gastrointestinal necrosis [Fatal]
  - Explorative laparotomy [Unknown]
  - Peritonitis [Unknown]
  - Small intestinal resection [Unknown]
  - Periodontitis [Fatal]
  - Abdominal pain [Unknown]

NARRATIVE: CASE EVENT DATE: 201501
